FAERS Safety Report 13831664 (Version 7)
Quarter: 2017Q3

REPORT INFORMATION
  Report Type: Spontaneous
  Country: US (occurrence: US)
  Receive Date: 20170803
  Receipt Date: 20170922
  Transmission Date: 20171127
  Serious: No
  Sender: FDA-Public Use
  Company Number: US-ACTELION-A-NJ2017-157509

PATIENT
  Age: 26 Year
  Sex: Female
  Weight: 63.39 kg

DRUGS (5)
  1. VELETRI [Suspect]
     Active Substance: EPOPROSTENOL
     Indication: PULMONARY HYPERTENSION
     Dosage: 8 NG/KG, PER MIN
     Route: 042
  2. OPSUMIT [Suspect]
     Active Substance: MACITENTAN
     Indication: PULMONARY HYPERTENSION
     Dosage: 10 MG, QD
     Route: 048
  3. VELETRI [Suspect]
     Active Substance: EPOPROSTENOL
     Dosage: 17 NG/KG, PER MIN
     Route: 042
  4. UPTRAVI [Suspect]
     Active Substance: SELEXIPAG
     Indication: PULMONARY HYPERTENSION
     Dosage: 600 MCG, BID
     Route: 048
  5. ADCIRCA [Concomitant]
     Active Substance: TADALAFIL

REACTIONS (16)
  - Catheter site pruritus [Unknown]
  - Pain in jaw [Recovering/Resolving]
  - Nausea [Recovering/Resolving]
  - Diarrhoea [Recovering/Resolving]
  - Dizziness [Recovered/Resolved]
  - Headache [Unknown]
  - Suture related complication [Unknown]
  - Catheter site rash [Unknown]
  - Myalgia [Unknown]
  - Pain [Recovering/Resolving]
  - Presyncope [Unknown]
  - Arthralgia [Recovering/Resolving]
  - Catheter site discharge [Unknown]
  - Vomiting [Unknown]
  - Syncope [Recovered/Resolved]
  - Vision blurred [Unknown]
